FAERS Safety Report 7400132-X (Version None)
Quarter: 2011Q2

REPORT INFORMATION
  Report Type: 
  Country: None (occurrence: None)
  Receive Date: 20110407
  Receipt Date: 20110406
  Transmission Date: 20111010
  Serious: Yes (Hospitalization, Other)
  Sender: FDA-Public Use
  Company Number: FR-ABBOTT-09P-056-0576617-00

PATIENT
  Sex: Male

DRUGS (12)
  1. SELOKEN [Interacting]
     Indication: PRODUCT USED FOR UNKNOWN INDICATION
     Route: 048
     Dates: end: 20090205
  2. LOPINAVIR/RITONAVIR [Suspect]
     Indication: PROPHYLAXIS AGAINST HIV INFECTION
     Dosage: 400/100 MG TWICE DAILY
     Route: 048
     Dates: start: 20090203, end: 20090205
  3. RAMIPRIL [Interacting]
     Route: 048
     Dates: start: 20090209
  4. CRESTOR [Concomitant]
     Indication: PRODUCT USED FOR UNKNOWN INDICATION
     Route: 048
  5. ROSUVASTATIN [Concomitant]
     Indication: PRODUCT USED FOR UNKNOWN INDICATION
  6. RAMIPRIL [Interacting]
     Indication: PRODUCT USED FOR UNKNOWN INDICATION
     Route: 048
     Dates: end: 20090205
  7. SELOKEN [Interacting]
     Route: 048
     Dates: start: 20090211
  8. LEVOTHYROXINE [Concomitant]
     Indication: PRODUCT USED FOR UNKNOWN INDICATION
     Route: 048
  9. ASPIRIN [Concomitant]
     Indication: PRODUCT USED FOR UNKNOWN INDICATION
     Route: 048
  10. CALDINE [Interacting]
     Indication: PRODUCT USED FOR UNKNOWN INDICATION
     Route: 048
     Dates: end: 20090205
  11. TRUVADA [Concomitant]
     Indication: PROPHYLAXIS AGAINST HIV INFECTION
     Dosage: 200/245 MG ONCE A DAY
     Route: 048
     Dates: start: 20090203
  12. CALDINE [Interacting]
     Route: 048
     Dates: start: 20090209

REACTIONS (6)
  - DRUG INTERACTION [None]
  - LOSS OF CONSCIOUSNESS [None]
  - BRADYCARDIA [None]
  - DRUG LEVEL ABOVE THERAPEUTIC [None]
  - HYPOTENSION [None]
  - ATRIOVENTRICULAR BLOCK COMPLETE [None]
